FAERS Safety Report 5528996-5 (Version None)
Quarter: 2007Q4

REPORT INFORMATION
  Report Type: 
  Country: None (occurrence: None)
  Receive Date: 20071119
  Receipt Date: 20070814
  Transmission Date: 20080405
  Serious: No
  Sender: FDA-Public Use
  Company Number: TPA2007A01714

PATIENT
  Age: 48 Year
  Sex: Female
  Weight: 72.5755 kg

DRUGS (3)
  1. ROZEREM [Suspect]
     Indication: INSOMNIA
     Dosage: 8 MG, 1 IN 1 D, PER ORAL
     Route: 048
     Dates: start: 20070810, end: 20070812
  2. ACTOINEL (RISEDRONATE SODIUM) [Concomitant]
  3. CALCIUM (CALCIUM) [Concomitant]

REACTIONS (2)
  - DIARRHOEA [None]
  - DRUG INEFFECTIVE [None]
